FAERS Safety Report 20166039 (Version 2)
Quarter: 2021Q4

REPORT INFORMATION
  Report Type: Spontaneous
  Country: US (occurrence: US)
  Receive Date: 20211209
  Receipt Date: 20211220
  Transmission Date: 20220303
  Serious: Yes (Other)
  Sender: FDA-Public Use
  Company Number: US-GSKCCFUS-Case-01235179_AE-72425

PATIENT
  Sex: Female

DRUGS (1)
  1. FLOVENT [Suspect]
     Active Substance: FLUTICASONE PROPIONATE
     Indication: Product used for unknown indication
     Dosage: 2 PUFF(S), BID
     Route: 055

REACTIONS (5)
  - Parkinson^s disease [Not Recovered/Not Resolved]
  - Spinal fracture [Unknown]
  - Dysphonia [Not Recovered/Not Resolved]
  - Product dose omission issue [Unknown]
  - Product complaint [Unknown]
